FAERS Safety Report 10059479 (Version 1)
Quarter: 2014Q2

REPORT INFORMATION
  Report Type: Spontaneous
  Country: US (occurrence: US)
  Receive Date: 20140404
  Receipt Date: 20140404
  Transmission Date: 20141212
  Serious: Yes (Hospitalization)
  Sender: FDA-Public Use
  Company Number: US-PFIZER INC-2014093229

PATIENT
  Age: 56 Year
  Sex: Male
  Weight: 77.1 kg

DRUGS (8)
  1. XELJANZ [Suspect]
     Dosage: 5 MG, 2X/DAY
     Route: 048
  2. LEVOTHYROXIN [Concomitant]
     Dosage: 100 UG, UNK
  3. RANITIDINE [Concomitant]
     Dosage: 150 MG, UNK
  4. PREDNISONE [Concomitant]
     Dosage: 5 MG, UNK
  5. HYDROXYCHLOROQUINE [Concomitant]
     Dosage: 200 MG, UNK
  6. CALCIUM + VIT D [Concomitant]
     Dosage: UNK
  7. LEFLUNOMIDE [Concomitant]
     Dosage: 10 MG, UNK
  8. ACETYLSALICYLIC ACID [Concomitant]
     Dosage: 81 MG, UNK

REACTIONS (2)
  - Colectomy [Recovered/Resolved]
  - Peripheral swelling [Recovered/Resolved]
